FAERS Safety Report 10392513 (Version 2)
Quarter: 2014Q3

REPORT INFORMATION
  Report Type: Report from Study
  Country: BR (occurrence: BR)
  Receive Date: 20140819
  Receipt Date: 20140929
  Transmission Date: 20150326
  Serious: Yes (Hospitalization)
  Sender: FDA-Public Use
  Company Number: PHHY2014BR102511

PATIENT
  Sex: Female
  Weight: 51.5 kg

DRUGS (6)
  1. ZETION [Concomitant]
     Indication: ISCHAEMIA
     Dosage: 1 DF, DAILY
     Dates: start: 201405
  2. DIFFERIN [Concomitant]
     Active Substance: ADAPALENE
     Indication: ANAEMIA
     Dosage: 2 DF, DAILY
     Dates: start: 201401
  3. NAPRIX [Concomitant]
     Active Substance: RAMIPRIL
     Indication: BLOOD PRESSURE ABNORMAL
     Dosage: 1 DF, DAILY
  4. QUETIAPINE [Concomitant]
     Active Substance: QUETIAPINE
     Indication: ISCHAEMIA
     Dosage: 1 DF, DAILY
     Dates: start: 201405
  5. EXELON PATCH [Suspect]
     Active Substance: RIVASTIGMINE
     Indication: DEMENTIA ALZHEIMER^S TYPE
  6. EXELON PATCH [Suspect]
     Active Substance: RIVASTIGMINE
     Indication: ISCHAEMIA
     Dosage: 4.6 MG, DAILY (9MG/5CM2)
     Route: 062
     Dates: start: 201405

REACTIONS (7)
  - Movement disorder [Recovering/Resolving]
  - Gastrointestinal disorder [Recovering/Resolving]
  - Pruritus [Recovering/Resolving]
  - Skin irritation [Recovering/Resolving]
  - Application site erythema [Recovering/Resolving]
  - Malaise [Recovering/Resolving]
  - Weight decreased [Recovering/Resolving]
